FAERS Safety Report 4522749-2 (Version None)
Quarter: 2004Q4

REPORT INFORMATION
  Report Type: 
  Country: None (occurrence: None)
  Receive Date: 20041207
  Receipt Date: 20041130
  Transmission Date: 20050328
  Serious: Yes (Disabling)
  Sender: FDA-Public Use
  Company Number: THQ2004A00915

PATIENT
  Age: 74 Year
  Sex: Female

DRUGS (6)
  1. LANSOPRAZOLE [Suspect]
     Indication: REFLUX OESOPHAGITIS
     Dosage: 15 MG (15 MG, 1 IN 1 D) PER ORAL
     Route: 048
     Dates: start: 20040916, end: 20040928
  2. PREDNISOLONE [Concomitant]
  3. CETIRIZINE (CETIRIZINE) [Concomitant]
  4. IPRATROPIUM BROMIDE [Concomitant]
  5. RAMIPRIL [Concomitant]
  6. HYDROXOCOBALAMIN (HYDROXOCOBALAMIN) (INJECTION) [Concomitant]

REACTIONS (7)
  - ACUTE FEBRILE NEUTROPHILIC DERMATOSIS [None]
  - DRY MOUTH [None]
  - DRY THROAT [None]
  - ERYTHEMA MULTIFORME [None]
  - JAUNDICE [None]
  - OCULAR ICTERUS [None]
  - SWELLING FACE [None]
